FAERS Safety Report 23242347 (Version 4)
Quarter: 2024Q1

REPORT INFORMATION
  Report Type: Spontaneous
  Country: US (occurrence: US)
  Receive Date: 20231129
  Receipt Date: 20240124
  Transmission Date: 20240410
  Serious: Yes (Life-Threatening, Hospitalization, Other)
  Sender: FDA-Public Use
  Company Number: US-PFIZER INC-202300409511

PATIENT
  Age: 83 Year
  Sex: Female
  Weight: 99.79 kg

DRUGS (18)
  1. PAXLOVID [Suspect]
     Active Substance: NIRMATRELVIR\RITONAVIR
     Indication: COVID-19 treatment
     Dosage: [NIRMATRELVIR 300 MG]/[RITONAVIR 100 MG]; 2X/DAY
     Route: 048
     Dates: start: 2023, end: 2023
  2. PAXLOVID [Suspect]
     Active Substance: NIRMATRELVIR\RITONAVIR
     Dosage: DAILY FOR 5 DAYS
     Route: 048
     Dates: start: 20231022, end: 20231027
  3. ASPIRIN [Concomitant]
     Active Substance: ASPIRIN
     Indication: Anticoagulant therapy
     Dosage: TAKE 1 TABLET BY MOUTH DAILY
     Route: 048
     Dates: start: 20220601
  4. DIFLUCAN [Concomitant]
     Active Substance: FLUCONAZOLE
     Dosage: UNK, 1X/DAY
     Route: 048
     Dates: start: 20230110
  5. ANUSOL HC [Concomitant]
     Active Substance: HYDROCORTISONE
     Dosage: INSERT 1 APPLICATORFUL RECTALLY 3 TIMES DAILY
     Route: 054
     Dates: start: 20230202
  6. POTASSIUM CHLORIDE [Concomitant]
     Active Substance: POTASSIUM CHLORIDE
     Dosage: TAKE 1 CAPSULE BY MOUTH EVERY DAY
     Route: 048
     Dates: start: 20210318
  7. FLONASE ALLERGY RELIEF [Concomitant]
     Active Substance: FLUTICASONE PROPIONATE
     Indication: Rhinitis allergic
     Dosage: 50 MCG/ACT USE 2 SPRAYS IN EACH NOSTRIL TWICE DAILY
     Route: 045
     Dates: start: 20230224
  8. IPRATROPIUM BROMIDE [Concomitant]
     Active Substance: IPRATROPIUM BROMIDE\IPRATROPIUM BROMIDE ANHYDROUS
     Indication: Rhinitis allergic
     Dosage: USE 1 SPRAYS NASALLY THREE TIMES A DAY
     Route: 045
     Dates: start: 20230224
  9. LORAZEPAM [Concomitant]
     Active Substance: LORAZEPAM
     Indication: Anxiety
     Dosage: TAKE 1 TABLET EVERY 12 HOURS AS NEEDED
     Dates: start: 20210604
  10. LORAZEPAM [Concomitant]
     Active Substance: LORAZEPAM
     Indication: Insomnia
  11. LISINOPRIL [Concomitant]
     Active Substance: LISINOPRIL
     Indication: Essential hypertension
     Dosage: TAKE 1 TABLET BY MOUTH EVERY DAY
     Route: 048
     Dates: start: 20210413
  12. PROAIR HFA [Concomitant]
     Active Substance: ALBUTEROL SULFATE
     Indication: Chronic obstructive pulmonary disease
     Dosage: HFA 108 (90 BASE) MCG/ACT; TAKE 2 PUFFS EVERY 6 HOURS AS NEEDED FOR 30 DAYS (S)
     Dates: start: 20170621
  13. FUROSEMIDE [Concomitant]
     Active Substance: FUROSEMIDE
     Indication: Gravitational oedema
     Dosage: TAKE 1 TABLET BY MOUTH EVERY DAY AS NEEDED
     Route: 048
     Dates: start: 20210611
  14. HYDROCORTISONE ACETATE [Concomitant]
     Active Substance: HYDROCORTISONE ACETATE
     Indication: Haemorrhoids
     Dosage: INSERT 1 SUPPOSITORY RECTALLY 2 TIMES DAILY
     Route: 054
     Dates: start: 20230224
  15. NYSTATIN [NYSTATIN;ZINC OXIDE] [Concomitant]
     Indication: Skin candida
     Dosage: APPLY AND RUB IN A THIN FILM TO AFFECTED AREAS TWICE DAILY (AM AND PM)
     Dates: start: 20220119
  16. ZYRTEC [Concomitant]
     Active Substance: CETIRIZINE HYDROCHLORIDE
     Indication: Gravitational oedema
     Dosage: TAKE 1 TABLET TWICE DAILY
     Route: 048
     Dates: start: 20221121
  17. TRIAZOLAM [Concomitant]
     Active Substance: TRIAZOLAM
     Indication: Insomnia
     Dosage: TAKE 2 TABLET BEDTIME
     Route: 048
     Dates: start: 20210511
  18. OXYCODONE HYDROCHLORIDE [Concomitant]
     Active Substance: OXYCODONE HYDROCHLORIDE
     Indication: Arthralgia
     Dosage: TAKE 1 TABLET 5 TIMES DAILY
     Route: 048
     Dates: start: 20201112

REACTIONS (14)
  - Loss of consciousness [Recovering/Resolving]
  - Gait inability [Recovering/Resolving]
  - Localised oedema [Recovering/Resolving]
  - Rhabdomyolysis [Recovering/Resolving]
  - Fall [Recovering/Resolving]
  - Platelet disorder [Recovering/Resolving]
  - Nephrolithiasis [Recovering/Resolving]
  - Muscular weakness [Recovering/Resolving]
  - Dysstasia [Unknown]
  - Pain [Unknown]
  - Asthenia [Unknown]
  - Feeling abnormal [Unknown]
  - Syncope [Recovered/Resolved]
  - Off label use [Unknown]

NARRATIVE: CASE EVENT DATE: 20230101
